FAERS Safety Report 11543968 (Version 1)
Quarter: 2015Q3

REPORT INFORMATION
  Report Type: Spontaneous
  Country: US (occurrence: US)
  Receive Date: 20150924
  Receipt Date: 20150924
  Transmission Date: 20151125
  Serious: No
  Sender: FDA-Public Use
  Company Number: PHEH2014US025966

PATIENT
  Sex: Female

DRUGS (12)
  1. CATAFLAM [Suspect]
     Active Substance: DICLOFENAC POTASSIUM
     Indication: BACK PAIN
     Dosage: 50 MG (4 TIMES A DAY)
     Route: 065
  2. ANAPROX [Suspect]
     Active Substance: NAPROXEN SODIUM
     Indication: PRODUCT USED FOR UNKNOWN INDICATION
     Route: 065
  3. DICLOFENAC [Suspect]
     Active Substance: DICLOFENAC
     Indication: PRODUCT USED FOR UNKNOWN INDICATION
     Route: 065
  4. SOMA [Concomitant]
     Active Substance: CARISOPRODOL
     Indication: PRODUCT USED FOR UNKNOWN INDICATION
     Route: 065
  5. SYNTHROID [Concomitant]
     Active Substance: LEVOTHYROXINE SODIUM
     Indication: PRODUCT USED FOR UNKNOWN INDICATION
     Route: 065
  6. CATAFLAM [Suspect]
     Active Substance: DICLOFENAC POTASSIUM
     Dosage: 50 MG, QD
     Route: 065
  7. LORCET [Concomitant]
     Active Substance: ACETAMINOPHEN\HYDROCODONE BITARTRATE
     Indication: PRODUCT USED FOR UNKNOWN INDICATION
     Route: 065
  8. CATAFLAM [Suspect]
     Active Substance: DICLOFENAC POTASSIUM
     Dosage: 50 UNK, BID
     Route: 065
  9. NAPROSIAN [Suspect]
     Active Substance: NAPROXEN
     Indication: MUSCLE SPASMS
     Route: 065
  10. NORCO [Suspect]
     Active Substance: ACETAMINOPHEN\HYDROCODONE BITARTRATE
     Indication: PRODUCT USED FOR UNKNOWN INDICATION
     Route: 065
  11. VISTARIL [Concomitant]
     Active Substance: HYDROXYZINE PAMOATE
     Indication: PRODUCT USED FOR UNKNOWN INDICATION
     Route: 065
  12. VICODIN [Suspect]
     Active Substance: ACETAMINOPHEN\HYDROCODONE BITARTRATE
     Indication: PRODUCT USED FOR UNKNOWN INDICATION
     Route: 065

REACTIONS (4)
  - Nausea [Unknown]
  - Pruritus [Unknown]
  - Abdominal discomfort [Unknown]
  - Drug ineffective [Unknown]
